FAERS Safety Report 17693387 (Version 1)
Quarter: 2020Q2

REPORT INFORMATION
  Report Type: Other
  Country: CA (occurrence: CA)
  Receive Date: 20200422
  Receipt Date: 20200422
  Transmission Date: 20200714
  Serious: Yes (Life-Threatening, Hospitalization, Other)
  Sender: FDA-Public Use
  Company Number: CA-EYWA PHARMA INC.-2083048

PATIENT
  Age: 52 Year
  Sex: Female

DRUGS (1)
  1. ACETAZOLAMIDE. [Suspect]
     Active Substance: ACETAZOLAMIDE
     Indication: IDIOPATHIC INTRACRANIAL HYPERTENSION
     Route: 065

REACTIONS (3)
  - Metabolic acidosis [Unknown]
  - Respiratory failure [Unknown]
  - Product use in unapproved indication [Unknown]
